FAERS Safety Report 6025288-5 (Version None)
Quarter: 2008Q4

REPORT INFORMATION
  Report Type: 
  Country: None (occurrence: None)
  Receive Date: 20081231
  Receipt Date: 20081222
  Transmission Date: 20090506
  Serious: Yes (Death, Other)
  Sender: FDA-Public Use
  Company Number: PHBS2006JP19295

PATIENT
  Sex: Male

DRUGS (2)
  1. GLEEVEC [Suspect]
     Indication: GASTROINTESTINAL STROMAL TUMOUR
     Dosage: 400 MG/DAY
     Route: 048
     Dates: start: 20051004
  2. TS 1 [Suspect]
     Indication: GASTRIC CANCER
     Dosage: 120 MG/DAY
     Route: 048
     Dates: start: 20051004, end: 20051207

REACTIONS (15)
  - BLOOD CREATININE INCREASED [None]
  - BLOOD LACTATE DEHYDROGENASE INCREASED [None]
  - BLOOD UREA INCREASED [None]
  - CONDITION AGGRAVATED [None]
  - DIFFUSE ALVEOLAR DAMAGE [None]
  - INTERSTITIAL LUNG DISEASE [None]
  - MALIGNANT NEOPLASM PROGRESSION [None]
  - OXYGEN SATURATION DECREASED [None]
  - PAIN IN EXTREMITY [None]
  - PATHOLOGICAL FRACTURE [None]
  - PLATELET COUNT DECREASED [None]
  - PULMONARY CONGESTION [None]
  - PULMONARY OEDEMA [None]
  - PYREXIA [None]
  - RESPIRATORY DISORDER [None]
